FAERS Safety Report 9335421 (Version 2)
Quarter: 2013Q3

REPORT INFORMATION
  Report Type: Spontaneous
  Country: US (occurrence: US)
  Receive Date: 20130605
  Receipt Date: 20130829
  Transmission Date: 20140515
  Serious: No
  Sender: FDA-Public Use
  Company Number: US-009507513-1305USA017235

PATIENT
  Sex: Male
  Weight: 92.97 kg

DRUGS (4)
  1. CLARITIN-D-24 [Suspect]
     Indication: RESPIRATORY TRACT CONGESTION
     Dosage: 10 MG, QD
     Route: 048
  2. CLARITIN-D-24 [Suspect]
     Indication: MEDICAL OBSERVATION
  3. ASPIRIN [Concomitant]
     Indication: PRODUCT USED FOR UNKNOWN INDICATION
     Dosage: UNK, UNKNOWN
  4. ONE-A-DAY ESSENTIAL VITAMINS [Concomitant]
     Indication: PRODUCT USED FOR UNKNOWN INDICATION
     Dosage: UNK, UNKNOWN

REACTIONS (3)
  - Dysuria [Recovered/Resolved]
  - Dizziness [Recovered/Resolved]
  - Drug ineffective [Unknown]
